FAERS Safety Report 5811330-0 (Version None)
Quarter: 2008Q3

REPORT INFORMATION
  Report Type: 
  Country: None (occurrence: None)
  Receive Date: 20080710
  Receipt Date: 20080528
  Transmission Date: 20090109
  Serious: Yes (Hospitalization)
  Sender: FDA-Public Use
  Company Number: GXKR2008FR06231

PATIENT
  Age: 79 Year
  Sex: Female

DRUGS (12)
  1. VANCOMYCIN SANDOZ (NGX) (VANCOMYCIN) UNKNOWN [Suspect]
     Indication: INFECTION
     Dates: start: 20071227, end: 20080108
  2. DEXAMETHASONE [Suspect]
     Indication: MULTIPLE MYELOMA
     Dates: start: 20071127, end: 20071130
  3. GENTAMYCIN PANPHARMA (GENTAMICIN SULFATE) [Suspect]
     Indication: INFECTION
     Dates: start: 20071027, end: 20080101
  4. HEPARIN [Suspect]
     Indication: PROPHYLAXIS
     Dates: start: 20071127, end: 20071228
  5. FUROSEMIDE [Concomitant]
  6. KARDEGIC (ACETYLSALICYLATE LYSINE) POWDER [Concomitant]
  7. DUROGESIC (FENTANLY) [Concomitant]
  8. ARANESP [Concomitant]
  9. THALIDOMIDE [Concomitant]
  10. ACETAMINOPHEN [Concomitant]
  11. CLONAZEPAM [Concomitant]
  12. PAMIDRONATE DISODIUM [Concomitant]

REACTIONS (1)
  - TOXIC SKIN ERUPTION [None]
